FAERS Safety Report 9275794 (Version 1)
Quarter: 2013Q2

REPORT INFORMATION
  Report Type: Report from Study
  Country: US (occurrence: US)
  Receive Date: 20130507
  Receipt Date: 20130507
  Transmission Date: 20140414
  Serious: Yes (Hospitalization)
  Sender: FDA-Public Use
  Company Number: US-ABBOTT-13P-163-1054917-00

PATIENT
  Age: 57 Year
  Sex: Female

DRUGS (6)
  1. HUMIRA [Suspect]
     Indication: COLITIS ULCERATIVE
     Dates: start: 201212
  2. 6-MP [Suspect]
     Indication: COLITIS ULCERATIVE
     Dosage: 50 MG, 3 TABS DAILY
     Dates: end: 201302
  3. LIALDA [Concomitant]
     Indication: COLITIS ULCERATIVE
  4. CANASA [Concomitant]
     Indication: COLITIS ULCERATIVE
  5. MULTIVITAMIN [Concomitant]
     Indication: VITAMIN SUPPLEMENTATION
  6. STRONG HAIR AND NAIL BIOTIN SUPPLEMENT [Concomitant]
     Indication: ALOPECIA

REACTIONS (15)
  - Wound [Recovered/Resolved]
  - Wound [Recovered/Resolved]
  - Glossodynia [Recovered/Resolved]
  - Impetigo [Recovered/Resolved]
  - Sepsis [Recovered/Resolved]
  - Ocular icterus [Unknown]
  - Poor quality sleep [Unknown]
  - Tongue disorder [Unknown]
  - Tongue disorder [Unknown]
  - Hypoaesthesia [Unknown]
  - Lip blister [Unknown]
  - Nervousness [Unknown]
  - Dry skin [Unknown]
  - Pain in extremity [Unknown]
  - Skin fissures [Unknown]
